FAERS Safety Report 7552118-2 (Version None)
Quarter: 2011Q2

REPORT INFORMATION
  Report Type: 
  Country: None (occurrence: None)
  Receive Date: 20110616
  Receipt Date: 20110606
  Transmission Date: 20111010
  Serious: Yes (Hospitalization)
  Sender: FDA-Public Use
  Company Number: PHHY2011FR50251

PATIENT
  Sex: Male

DRUGS (7)
  1. RISPERDAL [Suspect]
     Dosage: UNK UKN, UNK
     Dates: start: 20110205
  2. MIRTAZAPINE [Concomitant]
     Dosage: UNK UKN, UNK
  3. STALEVO 100 [Suspect]
     Dosage: 150 MG, UNK
     Dates: end: 20110301
  4. AZILECT [Suspect]
     Dosage: UNK UKN, UNK
     Dates: start: 20110205, end: 20110301
  5. STALEVO 100 [Suspect]
     Dosage: UNK UKN, UNK
     Dates: start: 20110301
  6. REQUIP [Concomitant]
     Dosage: UNK UKN, UNK
  7. OXAZEPAM [Concomitant]
     Dosage: UNK UKN, UNK

REACTIONS (7)
  - CONFUSIONAL STATE [None]
  - AGITATION [None]
  - ABNORMAL BEHAVIOUR [None]
  - HALLUCINATION [None]
  - DELIRIUM [None]
  - RESTLESSNESS [None]
  - HYPOPHAGIA [None]
